FAERS Safety Report 11395250 (Version 1)
Quarter: 2015Q3

REPORT INFORMATION
  Report Type: Other
  Country: FR (occurrence: FR)
  Receive Date: 20150819
  Receipt Date: 20150819
  Transmission Date: 20151125
  Serious: Yes (Other)
  Sender: FDA-Public Use
  Company Number: FR-MYLANLABS-2015M1026736

PATIENT

DRUGS (4)
  1. VANCOMYCINE MYLAN [Suspect]
     Active Substance: VANCOMYCIN
     Dosage: 45 MG, TID
     Route: 041
     Dates: start: 201503
  2. VANCOMYCINE MYLAN [Suspect]
     Active Substance: VANCOMYCIN
     Indication: PRODUCT USED FOR UNKNOWN INDICATION
     Dosage: UNK
     Route: 041
     Dates: start: 201502, end: 20150305
  3. VANCOMYCINE MYLAN [Suspect]
     Active Substance: VANCOMYCIN
     Dosage: 720 MG, ONCE
     Route: 041
     Dates: start: 20150205, end: 20150206
  4. VANCOMYCINE MYLAN [Suspect]
     Active Substance: VANCOMYCIN
     Dosage: 55 MG, QID
     Route: 041
     Dates: start: 201503, end: 201503

REACTIONS (3)
  - Drug level increased [Recovered/Resolved]
  - Drug administration error [Recovered/Resolved]
  - Accidental overdose [Recovered/Resolved]

NARRATIVE: CASE EVENT DATE: 20150306
